FAERS Safety Report 4786824-X (Version None)
Quarter: 2005Q4

REPORT INFORMATION
  Report Type: 
  Country: None (occurrence: None)
  Receive Date: 20051004
  Receipt Date: 20050922
  Transmission Date: 20060501
  Serious: Yes (Hospitalization)
  Sender: FDA-Public Use
  Company Number: CA-BRISTOL-MYERS SQUIBB COMPANY-13120555

PATIENT
  Age: 80 Year
  Sex: Female
  Weight: 55 kg

DRUGS (3)
  1. BLINDED: IRBESARTAN [Suspect]
     Indication: HYPERTENSION
  2. BLINDED: PLACEBO [Suspect]
     Indication: HYPERTENSION
  3. WARFARIN SODIUM [Suspect]
     Indication: PROPHYLAXIS
     Route: 048
     Dates: start: 20040909

REACTIONS (1)
  - ANAEMIA [None]
